FAERS Safety Report 15541458 (Version 1)
Quarter: 2018Q4

REPORT INFORMATION
  Report Type: Spontaneous
  Country: US (occurrence: US)
  Receive Date: 20181023
  Receipt Date: 20181023
  Transmission Date: 20190205
  Serious: No
  Sender: FDA-Public Use
  Company Number: US-TORRENT-00005662

PATIENT
  Age: 35 Year
  Sex: Female

DRUGS (1)
  1. ESCITALOPRAM [Suspect]
     Active Substance: ESCITALOPRAM OXALATE
     Indication: AFFECTIVE DISORDER
     Dosage: CUTTING THE TABLET INTO QUARTER AND TAKES 5 MG (FROM UNSPECIFIED DATE)
     Dates: start: 2014

REACTIONS (3)
  - Wrong technique in product usage process [Unknown]
  - Nausea [Not Recovered/Not Resolved]
  - Mental disorder [Not Recovered/Not Resolved]

NARRATIVE: CASE EVENT DATE: 20171024
